FAERS Safety Report 7126574-8 (Version None)
Quarter: 2010Q4

REPORT INFORMATION
  Report Type: 
  Country: None (occurrence: None)
  Receive Date: 20101129
  Receipt Date: 20101118
  Transmission Date: 20110411
  Serious: Yes (Hospitalization, Other)
  Sender: FDA-Public Use
  Company Number: GB-ASTRAZENECA-2010SE52875

PATIENT
  Age: 23364 Day
  Sex: Female

DRUGS (2)
  1. SEROQUEL [Suspect]
     Route: 048
     Dates: start: 20100906
  2. SEROQUEL [Suspect]
     Route: 048
     Dates: end: 20100918

REACTIONS (5)
  - MOOD SWINGS [None]
  - NEPHROPATHY TOXIC [None]
  - NEUROLEPTIC MALIGNANT SYNDROME [None]
  - RENAL FAILURE [None]
  - RHABDOMYOLYSIS [None]
